FAERS Safety Report 24255031 (Version 1)
Quarter: 2024Q3

REPORT INFORMATION
  Report Type: Spontaneous
  Country: SI (occurrence: SI)
  Receive Date: 20240827
  Receipt Date: 20240827
  Transmission Date: 20241016
  Serious: Yes (Other)
  Sender: NOVARTIS
  Company Number: SI-002147023-NVSC2024SI170939

PATIENT
  Age: 80 Year
  Sex: Female

DRUGS (5)
  1. KISQALI [Suspect]
     Active Substance: RIBOCICLIB
     Indication: Hormone receptor positive breast cancer
     Dosage: 400 MG
     Route: 065
     Dates: start: 202305
  2. KISQALI [Suspect]
     Active Substance: RIBOCICLIB
     Dosage: 600 MG
     Route: 065
  3. FULVESTRANT [Suspect]
     Active Substance: FULVESTRANT
     Indication: Product used for unknown indication
     Dosage: UNK
     Route: 065
  4. PROLIA [Concomitant]
     Active Substance: DENOSUMAB
     Indication: Metastases to lung
     Dosage: 400 MG
     Route: 065
     Dates: start: 202305
  5. PROLIA [Concomitant]
     Active Substance: DENOSUMAB
     Indication: Breast cancer

REACTIONS (6)
  - Neutropenia [Recovered/Resolved]
  - Dyspnoea [Recovering/Resolving]
  - Productive cough [Recovered/Resolved]
  - Pneumonia [Recovering/Resolving]
  - C-reactive protein increased [Unknown]
  - Pleural effusion [Unknown]
